FAERS Safety Report 23471695 (Version 4)
Quarter: 2024Q1

REPORT INFORMATION
  Report Type: Other
  Country: US (occurrence: US)
  Receive Date: 20240202
  Receipt Date: 20240214
  Transmission Date: 20240410
  Serious: Yes (Hospitalization)
  Sender: FDA-Public Use
  Company Number: US-TRAVERE-2024TVT00009

PATIENT
  Age: 40 Year
  Sex: Female

DRUGS (9)
  1. FILSPARI [Suspect]
     Active Substance: SPARSENTAN
     Indication: IgA nephropathy
     Route: 048
     Dates: start: 20231225, end: 20240119
  2. FILSPARI [Suspect]
     Active Substance: SPARSENTAN
     Indication: Nephropathy
     Route: 048
     Dates: start: 20240129
  3. ALBUTEROL [Concomitant]
     Active Substance: ALBUTEROL
  4. ATORVASTATIN [Concomitant]
     Active Substance: ATORVASTATIN
  5. BUDESONIDE [Concomitant]
     Active Substance: BUDESONIDE
  6. CALCITRIOL [Concomitant]
     Active Substance: CALCITRIOL
  7. ELIQUIS [Concomitant]
     Active Substance: APIXABAN
  8. LASIX [Concomitant]
     Active Substance: FUROSEMIDE
  9. LEVOTHYROXINE [Concomitant]
     Active Substance: LEVOTHYROXINE\LEVOTHYROXINE SODIUM

REACTIONS (5)
  - Influenza [Unknown]
  - Dehydration [Unknown]
  - Hypotension [Unknown]
  - Fatigue [Unknown]
  - Aspartate aminotransferase increased [Unknown]
